FAERS Safety Report 25036230 (Version 1)
Quarter: 2025Q1

REPORT INFORMATION
  Report Type: Report from Study
  Country: CA (occurrence: CA)
  Receive Date: 20250304
  Receipt Date: 20250304
  Transmission Date: 20250409
  Serious: Yes (Other)
  Sender: TAKEDA
  Company Number: CA-TAKEDA-2024TUS045650

PATIENT
  Age: 73 Year
  Sex: Female

DRUGS (25)
  1. VEDOLIZUMAB [Suspect]
     Active Substance: VEDOLIZUMAB
     Indication: Colitis ulcerative
  2. VEDOLIZUMAB [Suspect]
     Active Substance: VEDOLIZUMAB
     Dosage: 300 MILLIGRAM, Q4WEEKS
     Dates: start: 20191217
  3. VEDOLIZUMAB [Suspect]
     Active Substance: VEDOLIZUMAB
     Indication: Colitis ulcerative
  4. VEDOLIZUMAB [Suspect]
     Active Substance: VEDOLIZUMAB
  5. VEDOLIZUMAB [Suspect]
     Active Substance: VEDOLIZUMAB
  6. PREDNISONE [Concomitant]
     Active Substance: PREDNISONE
     Dosage: UNK UNK, QD
  7. INSULIN GLARGINE [Concomitant]
     Active Substance: INSULIN GLARGINE
  8. Aspartate [Concomitant]
  9. ALLOPURINOL [Concomitant]
     Active Substance: ALLOPURINOL
  10. MESALAMINE [Concomitant]
     Active Substance: MESALAMINE
  11. MAGNESIUM GLUCONATE [Concomitant]
     Active Substance: MAGNESIUM GLUCONATE
  12. LOMOTIL [Concomitant]
     Active Substance: ATROPINE SULFATE\DIPHENOXYLATE HYDROCHLORIDE
  13. ATORVASTATIN [Concomitant]
     Active Substance: ATORVASTATIN
  14. VITAMIN D [Concomitant]
     Active Substance: VITAMIN D NOS
  15. CALCIUM CARBONATE [Concomitant]
     Active Substance: CALCIUM CARBONATE
  16. CYCLOBENZAPRINE [Concomitant]
     Active Substance: CYCLOBENZAPRINE
  17. BISOPROLOL [Concomitant]
     Active Substance: BISOPROLOL
  18. FUROSEMIDE [Concomitant]
     Active Substance: FUROSEMIDE
  19. RANITIDINE [Concomitant]
     Active Substance: RANITIDINE
  20. RAMIPRIL [Concomitant]
     Active Substance: RAMIPRIL
  21. XARELTO [Concomitant]
     Active Substance: RIVAROXABAN
  22. CETIRIZINE [Concomitant]
     Active Substance: CETIRIZINE HYDROCHLORIDE
  23. LORAZEPAM [Concomitant]
     Active Substance: LORAZEPAM
  24. NOVORAPID [Concomitant]
     Active Substance: INSULIN ASPART
  25. BASAGLAR [Concomitant]
     Active Substance: INSULIN GLARGINE

REACTIONS (5)
  - Dementia [Unknown]
  - Off label use [Unknown]
  - Productive cough [Unknown]
  - Nasopharyngitis [Not Recovered/Not Resolved]
  - Influenza [Unknown]

NARRATIVE: CASE EVENT DATE: 20191217
